FAERS Safety Report 13842388 (Version 1)
Quarter: 2017Q3

REPORT INFORMATION
  Report Type: Spontaneous
  Country: NL (occurrence: NL)
  Receive Date: 20170808
  Receipt Date: 20170808
  Transmission Date: 20171127
  Serious: Yes (Hospitalization)
  Sender: FDA-Public Use
  Company Number: NL-ASTRAZENECA-2017SE78194

PATIENT
  Age: 73 Year
  Sex: Male
  Weight: 73 kg

DRUGS (6)
  1. ATROVENT [Concomitant]
     Active Substance: IPRATROPIUM BROMIDE
     Dosage: 1 DF AS NECESSARY
     Route: 055
  2. SERETIDE DISKUS INHPDR [Concomitant]
     Dosage: 50/250MCG 1 DF
     Route: 055
  3. CASODEX [Suspect]
     Active Substance: BICALUTAMIDE
     Indication: BREAST TENDERNESS
     Route: 048
     Dates: start: 20091019, end: 20170715
  4. BRICANYL [Concomitant]
     Active Substance: TERBUTALINE SULFATE
     Dosage: 0.5 MG, 1 DF
     Route: 055
  5. SPIRIVA [Concomitant]
     Active Substance: TIOTROPIUM BROMIDE MONOHYDRATE
     Dosage: 18 MCG, 1 DF
     Route: 055
  6. MACROGOL/ZOUTEN CONC. VOOR DRANK [Concomitant]
     Dosage: 1 DF
     Route: 048

REACTIONS (3)
  - Left ventricular failure [Unknown]
  - Ejection fraction decreased [Unknown]
  - Cardiomyopathy [Unknown]

NARRATIVE: CASE EVENT DATE: 2017
